FAERS Safety Report 16056940 (Version 1)
Quarter: 2019Q2

REPORT INFORMATION
  Report Type: Spontaneous
  Country: US (occurrence: US)
  Receive Date: 20190311
  Receipt Date: 20190311
  Transmission Date: 20190711
  Serious: Yes (Other)
  Sender: FDA-Public Use
  Company Number: None

PATIENT
  Age: 74 Year
  Sex: Male
  Weight: 81.45 kg

DRUGS (20)
  1. EZETIMIBE. [Concomitant]
     Active Substance: EZETIMIBE
  2. RAPIMIL [Concomitant]
  3. FISH OIL [Concomitant]
     Active Substance: FISH OIL
  4. VITAMIN E [Concomitant]
     Active Substance: .ALPHA.-TOCOPHEROL
  5. BACTRIM [Concomitant]
     Active Substance: SULFAMETHOXAZOLE\TRIMETHOPRIM
  6. OXYCODONE [Concomitant]
     Active Substance: OXYCODONE
  7. KLOR-CON SPRINKLE [Concomitant]
     Active Substance: POTASSIUM CHLORIDE
  8. FOLIC ACID. [Concomitant]
     Active Substance: FOLIC ACID
  9. COD LIVER OIL [Concomitant]
     Active Substance: COD LIVER OIL
  10. GLUCOSAMINE CHODROITIN PLUS [Concomitant]
  11. GABAPENTIN. [Concomitant]
     Active Substance: GABAPENTIN
  12. ROSUVASTATIN. [Concomitant]
     Active Substance: ROSUVASTATIN
  13. TEMAZEPAM. [Concomitant]
     Active Substance: TEMAZEPAM
  14. FEXOFENADINE [Concomitant]
     Active Substance: FEXOFENADINE\FEXOFENADINE HYDROCHLORIDE
  15. NITROGLYCERIN. [Concomitant]
     Active Substance: NITROGLYCERIN
  16. RAMIPRIL. [Concomitant]
     Active Substance: RAMIPRIL
  17. ACYCLOVIR. [Concomitant]
     Active Substance: ACYCLOVIR
  18. NINLARO [Suspect]
     Active Substance: IXAZOMIB CITRATE
     Indication: PLASMA CELL MYELOMA
     Dosage: ?          OTHER FREQUENCY:DAY 1, 8, 15;?
     Route: 048
     Dates: start: 20180625
  19. ASPIRIN 81MG [Concomitant]
     Active Substance: ASPIRIN
  20. NEXIUM [Concomitant]
     Active Substance: ESOMEPRAZOLE MAGNESIUM

REACTIONS (1)
  - Diarrhoea [None]
